FAERS Safety Report 7281570-5 (Version None)
Quarter: 2011Q1

REPORT INFORMATION
  Report Type: 
  Country: None (occurrence: None)
  Receive Date: 20110208
  Receipt Date: 20110128
  Transmission Date: 20110831
  Serious: Yes (Other)
  Sender: FDA-Public Use
  Company Number: PHHY2010US59204

PATIENT
  Sex: Male
  Weight: 95.238 kg

DRUGS (4)
  1. OXYCODONE HCL [Concomitant]
     Indication: BACK PAIN
     Dosage: 5 MG, PRN
  2. EXTAVIA [Suspect]
     Indication: RELAPSING-REMITTING MULTIPLE SCLEROSIS
     Dosage: 0.25 MG, QOD
     Route: 058
     Dates: start: 20100526
  3. ZOLOFT [Concomitant]
     Dosage: UNK
  4. EXTAVIA [Suspect]
     Dosage: 0.3 MG, QOD
     Route: 058
     Dates: start: 20100625

REACTIONS (9)
  - VISUAL ACUITY REDUCED [None]
  - BALANCE DISORDER [None]
  - DYSPNOEA [None]
  - PARAESTHESIA [None]
  - HEADACHE [None]
  - HYPOAESTHESIA [None]
  - MUSCULOSKELETAL STIFFNESS [None]
  - SOMNOLENCE [None]
  - DEPRESSION [None]
